FAERS Safety Report 7204673-X (Version None)
Quarter: 2010Q4

REPORT INFORMATION
  Report Type: 
  Country: None (occurrence: None)
  Receive Date: 20101230
  Receipt Date: 20101228
  Transmission Date: 20110411
  Serious: No
  Sender: FDA-Public Use
  Company Number: US-PFIZER INC-2010180357

PATIENT
  Sex: Male
  Weight: 28.571 kg

DRUGS (4)
  1. GENOTROPIN [Suspect]
     Indication: BLOOD GROWTH HORMONE
     Dosage: 1.4 ML, 1X/DAY
     Route: 058
     Dates: start: 20101221
  2. DESMOPRESSIN ACETATE [Concomitant]
     Indication: BLADDER DISORDER
     Dosage: UNK
  3. OXYBUTYNIN [Concomitant]
     Indication: BLADDER DISORDER
     Dosage: UNK
  4. SENNA [Concomitant]
     Indication: ASTHMA
     Dosage: UNK

REACTIONS (1)
  - INJECTION SITE RASH [None]
